FAERS Safety Report 17733961 (Version 1)
Quarter: 2020Q2

REPORT INFORMATION
  Report Type: Spontaneous
  Country: US (occurrence: US)
  Receive Date: 20200430
  Receipt Date: 20200430
  Transmission Date: 20200714
  Serious: Yes (Hospitalization)
  Sender: FDA-Public Use
  Company Number: None

PATIENT
  Sex: Male
  Weight: 106 kg

DRUGS (2)
  1. CYTARABINE (63878) [Suspect]
     Active Substance: CYTARABINE
     Dates: end: 20200320
  2. DAUNORUBICIN [Suspect]
     Active Substance: DAUNORUBICIN
     Dates: end: 20200315

REACTIONS (5)
  - Hypertension [None]
  - Dyspnoea [None]
  - Lung consolidation [None]
  - Dialysis [None]
  - Hypoxia [None]

NARRATIVE: CASE EVENT DATE: 20200418
